FAERS Safety Report 17814522 (Version 6)
Quarter: 2021Q1

REPORT INFORMATION
  Report Type: Other
  Country: US (occurrence: US)
  Receive Date: 20200522
  Receipt Date: 20210125
  Transmission Date: 20210419
  Serious: Yes (Disabling)
  Sender: FDA-Public Use
  Company Number: US-ROCHE-2160181

PATIENT
  Age: 58 Year
  Sex: Female
  Weight: 68.1 kg

DRUGS (17)
  1. ACTEMRA [Suspect]
     Active Substance: TOCILIZUMAB
     Indication: RHEUMATOID ARTHRITIS
     Dosage: ONGOING:YES
     Route: 058
     Dates: start: 201709, end: 2018
  2. ACTEMRA [Suspect]
     Active Substance: TOCILIZUMAB
     Dosage: ONGOING:YES
     Route: 058
     Dates: start: 2017
  3. ACTEMRA [Suspect]
     Active Substance: TOCILIZUMAB
  4. ACTEMRA [Suspect]
     Active Substance: TOCILIZUMAB
     Dosage: ONGOING: YES; RESUMED 2018
     Route: 058
     Dates: start: 20180411
  5. ACTEMRA [Suspect]
     Active Substance: TOCILIZUMAB
     Dosage: ACTPEN
     Route: 058
  6. ESTRADIOL. [Concomitant]
     Active Substance: ESTRADIOL
     Route: 048
  7. ACTEMRA [Suspect]
     Active Substance: TOCILIZUMAB
  8. POTASSIUM CHLORIDE. [Concomitant]
     Active Substance: POTASSIUM CHLORIDE
     Route: 048
     Dates: start: 20150930
  9. ASPIRIN. [Concomitant]
     Active Substance: ASPIRIN
     Route: 048
  10. ATENOLOL. [Concomitant]
     Active Substance: ATENOLOL
     Route: 048
  11. ACTEMRA [Suspect]
     Active Substance: TOCILIZUMAB
  12. ACTEMRA [Suspect]
     Active Substance: TOCILIZUMAB
  13. LIFITEGRAST [Concomitant]
     Active Substance: LIFITEGRAST
     Route: 047
  14. ACETAMINOPHEN;HYDROCODONE [Concomitant]
     Active Substance: ACETAMINOPHEN\HYDROCODONE
     Dosage: 7.5?3.25 MGTABLET
     Route: 048
  15. ACTEMRA [Suspect]
     Active Substance: TOCILIZUMAB
  16. ACTEMRA [Suspect]
     Active Substance: TOCILIZUMAB
     Dosage: PEN INJECTOR
     Route: 058
  17. LISINOPRIL. [Concomitant]
     Active Substance: LISINOPRIL
     Route: 048

REACTIONS (16)
  - Illness [Unknown]
  - Oral infection [Recovered/Resolved]
  - White blood cell count decreased [Not Recovered/Not Resolved]
  - Sinusitis [Unknown]
  - Speech disorder [Unknown]
  - Feeling abnormal [Unknown]
  - Nerve injury [Not Recovered/Not Resolved]
  - Pain [Not Recovered/Not Resolved]
  - Pruritus [Unknown]
  - Blister [Unknown]
  - Hypoacusis [Unknown]
  - Tongue neoplasm malignant stage unspecified [Recovering/Resolving]
  - Impaired healing [Recovered/Resolved]
  - Lacrimation increased [Unknown]
  - Rhinorrhoea [Unknown]
  - Rash [Unknown]

NARRATIVE: CASE EVENT DATE: 201711
